FAERS Safety Report 8026003-6 (Version None)
Quarter: 2012Q1

REPORT INFORMATION
  Report Type: 
  Country: None (occurrence: None)
  Receive Date: 20120105
  Receipt Date: 20111004
  Transmission Date: 20120608
  Serious: No
  Sender: FDA-Public Use
  Company Number: US-ABBOTT-11P-163-0862546-00

PATIENT
  Age: 69 Year
  Sex: Female
  Weight: 63.56 kg

DRUGS (1)
  1. SYNTHROID [Suspect]
     Indication: PRODUCT USED FOR UNKNOWN INDICATION
     Dates: start: 20020101, end: 20020101

REACTIONS (6)
  - ABASIA [None]
  - FEELING ABNORMAL [None]
  - DYSARTHRIA [None]
  - ILL-DEFINED DISORDER [None]
  - CEREBRAL DISORDER [None]
  - MONOPARESIS [None]
